FAERS Safety Report 6297873-7 (Version None)
Quarter: 2009Q3

REPORT INFORMATION
  Report Type: 
  Country: None (occurrence: None)
  Receive Date: 20090804
  Receipt Date: 20090804
  Transmission Date: 20100115
  Serious: Yes (Other)
  Sender: FDA-Public Use
  Company Number: None

PATIENT
  Age: 71 Year
  Sex: Female
  Weight: 71.2147 kg

DRUGS (1)
  1. ALDARA [Suspect]
     Indication: SKIN CANCER
     Dosage: MINUTE AMOUNT, 5 NIGHTS PER WK, TOP
     Route: 061
     Dates: start: 20090614, end: 20090628

REACTIONS (3)
  - ASTHENIA [None]
  - COLITIS [None]
  - WEIGHT DECREASED [None]
